FAERS Safety Report 16803164 (Version 4)
Quarter: 2019Q3

REPORT INFORMATION
  Report Type: Spontaneous
  Country: US (occurrence: US)
  Receive Date: 20190913
  Receipt Date: 20190920
  Transmission Date: 20191005
  Serious: No
  Sender: FDA-Public Use
  Company Number: US-BIOGEN-2019BI00785141

PATIENT
  Age: 38 Year
  Sex: Female

DRUGS (2)
  1. AVONEX [Suspect]
     Active Substance: INTERFERON BETA-1A
     Indication: MULTIPLE SCLEROSIS
     Dosage: TOTAL DOSES EQUIVALENT TO 20 DOSES
     Route: 065
     Dates: start: 20140718
  2. AVONEX [Suspect]
     Active Substance: INTERFERON BETA-1A
     Route: 065
     Dates: start: 20120822

REACTIONS (4)
  - Fall [Recovered/Resolved]
  - Depression [Unknown]
  - Drug ineffective [Recovered/Resolved]
  - Secondary progressive multiple sclerosis [Unknown]

NARRATIVE: CASE EVENT DATE: 20190823
